FAERS Safety Report 9024330 (Version 3)
Quarter: 2014Q1

REPORT INFORMATION
  Report Type: Spontaneous
  Country: DK (occurrence: DK)
  Receive Date: 20130121
  Receipt Date: 20140217
  Transmission Date: 20141002
  Serious: Yes (Other)
  Sender: FDA-Public Use
  Company Number: PHHY2013DK004431

PATIENT
  Age: 80 Year
  Sex: Female

DRUGS (15)
  1. ACLASTA [Suspect]
     Indication: OSTEOPOROSIS
     Dosage: 5 MG/100ML, UNK
     Route: 042
     Dates: start: 2008
  2. ACLASTA [Suspect]
     Dosage: 5 MG, UNK
     Route: 042
     Dates: start: 200912
  3. ACLASTA [Suspect]
     Dosage: 5 MG, UNK
     Route: 042
     Dates: start: 20101216
  4. ACLASTA [Suspect]
     Dosage: 5 MG, UNK
     Route: 042
     Dates: start: 20111215
  5. ACLASTA [Suspect]
     Dosage: 5 MG, UNK
     Route: 042
     Dates: start: 20121214, end: 2013
  6. BISPHOSPHONATES [Concomitant]
     Indication: OSTEOPOROSIS
     Route: 048
  7. CENTYL MED KALIUMKLORID [Concomitant]
  8. SIMVASTATIN [Concomitant]
  9. CALCIUM [Concomitant]
  10. VITAMIN D [Concomitant]
  11. QUININE [Concomitant]
  12. MANDOLGIN [Concomitant]
  13. DIPYRIDAMOLE [Concomitant]
  14. ACETYLSALICYLSYRE [Concomitant]
  15. TRAMADOL HYDROCHLORIDE [Concomitant]

REACTIONS (2)
  - Osteonecrosis [Recovered/Resolved]
  - Impaired healing [Recovered/Resolved]
